FAERS Safety Report 13274782 (Version 1)
Quarter: 2017Q1

REPORT INFORMATION
  Report Type: Spontaneous
  Country: US (occurrence: US)
  Receive Date: 20170227
  Receipt Date: 20170227
  Transmission Date: 20170428
  Serious: Yes (Death)
  Sender: FDA-Public Use
  Company Number: US-TAIHO ONCOLOGY INC-EU-2017-00325

PATIENT
  Age: 68 Year
  Sex: Female

DRUGS (8)
  1. LASIX [Concomitant]
     Active Substance: FUROSEMIDE
     Dosage: NI
  2. ASCORBIC ACID. [Concomitant]
     Active Substance: ASCORBIC ACID
     Dosage: NI
  3. LONSURF [Suspect]
     Active Substance: TIPIRACIL HYDROCHLORIDE\TRIFLURIDINE
     Indication: RECTAL CANCER
     Route: 048
     Dates: start: 20161216
  4. LISINOPRIL. [Concomitant]
     Active Substance: LISINOPRIL
     Dosage: NI
  5. POTASSIUM [Concomitant]
     Active Substance: POTASSIUM
     Dosage: NI
  6. LIPITOR [Concomitant]
     Active Substance: ATORVASTATIN CALCIUM
     Dosage: NI
  7. OXYCODONE [Concomitant]
     Active Substance: OXYCODONE
     Dosage: NI
  8. MAG OXIDE [Concomitant]
     Active Substance: MAGNESIUM OXIDE
     Dosage: NI

REACTIONS (1)
  - Death [Fatal]

NARRATIVE: CASE EVENT DATE: 20170211
